FAERS Safety Report 9303300 (Version 1)
Quarter: 2012Q4

REPORT INFORMATION
  Report Type: Spontaneous
  Country: US (occurrence: None)
  Receive Date: 20121212
  Receipt Date: 20121212
  Transmission Date: 20130627
  Serious: No
  Sender: FDA-Public Use
  Company Number: 142071-1

PATIENT
  Age: 52 Year
  Sex: Male
  Weight: 86 kg

DRUGS (1)
  1. LEUCOVORIN CALCIUM FOR INJ. 50MG - BEDFORD LABS, INC. [Suspect]
     Indication: ESOPHAGEAL CANCER
     Dosage: 1 every 14 days
     Route: 042
     Dates: start: 20120824, end: 20121009

REACTIONS (2)
  - Deep vein thrombosis [None]
  - Subclavian vein thrombosis [None]
